FAERS Safety Report 22015046 (Version 2)
Quarter: 2023Q1

REPORT INFORMATION
  Report Type: Spontaneous
  Country: US (occurrence: US)
  Receive Date: 20230221
  Receipt Date: 20230302
  Transmission Date: 20230417
  Serious: No
  Sender: FDA-Public Use
  Company Number: US-SA-SAC20230220000293

PATIENT
  Age: 42 Year
  Sex: Female

DRUGS (1)
  1. DUPIXENT [Suspect]
     Active Substance: DUPILUMAB
     Indication: Nasal polyps
     Dosage: 200 MG, Q4W
     Route: 058
     Dates: start: 202302

REACTIONS (2)
  - Inappropriate schedule of product administration [Unknown]
  - Off label use [Unknown]

NARRATIVE: CASE EVENT DATE: 20230201
